FAERS Safety Report 4365645-6 (Version None)
Quarter: 2004Q2

REPORT INFORMATION
  Report Type: 
  Country: None (occurrence: None)
  Receive Date: 20040526
  Receipt Date: 20040526
  Transmission Date: 20050107
  Serious: Yes (Other)
  Sender: FDA-Public Use
  Company Number: None

PATIENT
  Age: 47 Year
  Sex: Male
  Weight: 140.6 kg

DRUGS (1)
  1. CLOPIDOGREL BISULFATE [Suspect]

REACTIONS (1)
  - EPISTAXIS [None]
